FAERS Safety Report 15624614 (Version 1)
Quarter: 2018Q4

REPORT INFORMATION
  Report Type: Spontaneous
  Country: DE (occurrence: DE)
  Receive Date: 20181116
  Receipt Date: 20181116
  Transmission Date: 20190205
  Serious: Yes (Other)
  Sender: FDA-Public Use
  Company Number: DE-TEVA-2018-DE-974547

PATIENT
  Sex: Female

DRUGS (1)
  1. FLUOXETIN-RATIOPHARM 20 MG TABLETTEN [Suspect]
     Active Substance: FLUOXETINE HYDROCHLORIDE
     Indication: DECREASED APPETITE
     Route: 048
     Dates: start: 2018

REACTIONS (1)
  - Liver function test increased [Not Recovered/Not Resolved]

NARRATIVE: CASE EVENT DATE: 2018
